FAERS Safety Report 16814992 (Version 4)
Quarter: 2019Q4

REPORT INFORMATION
  Report Type: Report from Study
  Country: CO (occurrence: CO)
  Receive Date: 20190917
  Receipt Date: 20191227
  Transmission Date: 20200122
  Serious: Yes (Hospitalization)
  Sender: FDA-Public Use
  Company Number: PHHY2019CO215036

PATIENT
  Sex: Female

DRUGS (1)
  1. KISQALI [Suspect]
     Active Substance: RIBOCICLIB
     Indication: BREAST CANCER METASTATIC
     Dosage: 600 MG, QD
     Route: 048
     Dates: start: 20190414

REACTIONS (6)
  - Headache [Unknown]
  - Depression [Unknown]
  - General physical health deterioration [Unknown]
  - Bone pain [Unknown]
  - Anxiety [Unknown]
  - Pain [Unknown]
